FAERS Safety Report 18620877 (Version 3)
Quarter: 2021Q1

REPORT INFORMATION
  Report Type: Spontaneous
  Country: US (occurrence: US)
  Receive Date: 20201215
  Receipt Date: 20210203
  Transmission Date: 20210419
  Serious: No
  Sender: FDA-Public Use
  Company Number: US-PFIZER INC-2019275839

PATIENT
  Age: 47 Year
  Sex: Male

DRUGS (1)
  1. PRISTIQ EXTENDED?RELEASE [Suspect]
     Active Substance: DESVENLAFAXINE SUCCINATE
     Dosage: 200 MG, DAILY (4 TAB ORAL DAILY)
     Route: 048

REACTIONS (1)
  - Frustration tolerance decreased [Unknown]

NARRATIVE: CASE EVENT DATE: 2020
